FAERS Safety Report 10162701 (Version 6)
Quarter: 2014Q3

REPORT INFORMATION
  Report Type: Report from Study
  Country: US (occurrence: US)
  Receive Date: 20140509
  Receipt Date: 20140827
  Transmission Date: 20150326
  Serious: Yes (Death, Life-Threatening, Hospitalization, Other)
  Sender: FDA-Public Use
  Company Number: PHHO2013US007161

PATIENT
  Age: 64 Year
  Sex: Male
  Weight: 68 kg

DRUGS (9)
  1. SOM230 [Suspect]
     Active Substance: PASIREOTIDE
     Dosage: 120 MG, UNK
     Route: 030
     Dates: start: 20130903
  2. SOM230 [Suspect]
     Active Substance: PASIREOTIDE
     Dosage: 120 MG, UNK
     Route: 030
     Dates: start: 20131223
  3. SOM230 [Suspect]
     Active Substance: PASIREOTIDE
     Dosage: 120 MG, UNK
     Route: 030
     Dates: start: 20130612
  4. SOM230 [Suspect]
     Active Substance: PASIREOTIDE
     Dosage: 120 MG, UNK
     Route: 030
     Dates: start: 20130710
  5. SOM230 [Suspect]
     Active Substance: PASIREOTIDE
     Indication: NEUROENDOCRINE TUMOUR
     Dosage: 120 MG, UNK
     Route: 030
     Dates: start: 20130122, end: 20130320
  6. SOM230 [Suspect]
     Active Substance: PASIREOTIDE
     Dosage: 120 MG, UNK
     Route: 030
     Dates: start: 20130417
  7. SOM230 [Suspect]
     Active Substance: PASIREOTIDE
     Dosage: 120 MG, UNK
     Route: 030
     Dates: start: 20131127
  8. SOM230 [Suspect]
     Active Substance: PASIREOTIDE
     Dosage: 120 MG, UNK
     Route: 030
     Dates: start: 20140219
  9. SOM230 [Suspect]
     Active Substance: PASIREOTIDE
     Dosage: 120 MG, UNK
     Route: 030
     Dates: end: 20140417

REACTIONS (11)
  - Procedural pain [Recovered/Resolved]
  - Renal failure [Unknown]
  - Bacteraemia [Fatal]
  - Bile duct stenosis [Recovered/Resolved]
  - Septic shock [Fatal]
  - Cholangitis [Recovered/Resolved]
  - Pancreatic duct stenosis [Recovered/Resolved]
  - Bile duct cancer [Recovering/Resolving]
  - Sepsis [Recovered/Resolved]
  - Hepatic failure [Fatal]
  - Hepatorenal syndrome [Fatal]

NARRATIVE: CASE EVENT DATE: 20130411
